FAERS Safety Report 6410475-4 (Version None)
Quarter: 2009Q4

REPORT INFORMATION
  Report Type: 
  Country: None (occurrence: None)
  Receive Date: 20091022
  Receipt Date: 20091010
  Transmission Date: 20100525
  Serious: Yes (Hospitalization)
  Sender: FDA-Public Use
  Company Number: US-CELGENEUS-163-21880-09092150

PATIENT
  Sex: Female
  Weight: 61.5 kg

DRUGS (2)
  1. REVLIMID [Suspect]
     Route: 048
     Dates: start: 20090819, end: 20090908
  2. REVLIMID [Suspect]
     Route: 048
     Dates: start: 20090924

REACTIONS (2)
  - ANAEMIA [None]
  - ORGANISING PNEUMONIA [None]
